FAERS Safety Report 18325979 (Version 2)
Quarter: 2020Q4

REPORT INFORMATION
  Report Type: Spontaneous
  Country: US (occurrence: US)
  Receive Date: 20200929
  Receipt Date: 20201215
  Transmission Date: 20210113
  Serious: Yes (Other)
  Sender: FDA-Public Use
  Company Number: US-JNJFOC-20200936332

PATIENT
  Age: 72 Year
  Sex: Male

DRUGS (5)
  1. XARELTO [Suspect]
     Active Substance: RIVAROXABAN
     Indication: PRODUCT USED FOR UNKNOWN INDICATION
     Route: 048
  2. IMBRUVICA [Concomitant]
     Active Substance: IBRUTINIB
     Route: 048
     Dates: start: 20190219
  3. IMBRUVICA [Concomitant]
     Active Substance: IBRUTINIB
     Route: 048
     Dates: start: 20190218
  4. IMBRUVICA [Concomitant]
     Active Substance: IBRUTINIB
     Indication: CHRONIC LYMPHOCYTIC LEUKAEMIA
     Route: 048
     Dates: start: 20190326
  5. IMBRUVICA [Concomitant]
     Active Substance: IBRUTINIB
     Route: 048

REACTIONS (7)
  - Atrial fibrillation [Unknown]
  - Onychoclasis [Recovering/Resolving]
  - Nephrolithiasis [Unknown]
  - Headache [Unknown]
  - Nail growth abnormal [Not Recovered/Not Resolved]
  - Faeces discoloured [Unknown]
  - Haemorrhage [Unknown]

NARRATIVE: CASE EVENT DATE: 2019
